FAERS Safety Report 4551066-X (Version None)
Quarter: 2005Q1

REPORT INFORMATION
  Report Type: 
  Country: None (occurrence: None)
  Receive Date: 20050110
  Receipt Date: 20041223
  Transmission Date: 20050727
  Serious: Yes (Death)
  Sender: FDA-Public Use
  Company Number: S04-USA-08058-01

PATIENT
  Age: 15 Year
  Sex: Female

DRUGS (2)
  1. CELEXA [Suspect]
     Indication: DEPRESSED MOOD
  2. CELEXA [Suspect]
     Indication: DEPRESSED MOOD

REACTIONS (2)
  - INJURY ASPHYXIATION [None]
  - INTENTIONAL SELF-INJURY [None]
